FAERS Safety Report 4795699-4 (Version None)
Quarter: 2005Q3

REPORT INFORMATION
  Report Type: 
  Country: None (occurrence: None)
  Receive Date: 20050916
  Receipt Date: 20050607
  Transmission Date: 20060218
  Serious: Yes (Hospitalization)
  Sender: FDA-Public Use
  Company Number: US-JNJFOC-20050602393

PATIENT
  Age: 51 Year
  Sex: Female

DRUGS (2)
  1. TOPAMAX [Suspect]
     Indication: EPILEPSY
     Dosage: 200 MG, 2 IN 1 DAY, ORAL; 200 MG, 1 IN 1 DAY, ORAL; 300 MG, 1 IN 1 DAY, ORAL
     Route: 048
     Dates: start: 20020101
  2. DILANTIN [Concomitant]

REACTIONS (2)
  - CONVULSION [None]
  - DIZZINESS [None]
